FAERS Safety Report 11412131 (Version 1)
Quarter: 2015Q3

REPORT INFORMATION
  Report Type: Spontaneous
  Country: US (occurrence: US)
  Receive Date: 20150821
  Receipt Date: 20150821
  Transmission Date: 20151125
  Serious: No
  Sender: FDA-Public Use
  Company Number: US-ELI_LILLY_AND_COMPANY-US201109006291

PATIENT
  Age: 38 Year
  Sex: Female

DRUGS (18)
  1. HUMULIN N [Suspect]
     Active Substance: INSULIN HUMAN
     Dosage: 17 U, EACH MORNING
     Dates: start: 1991
  2. HUMULIN R [Suspect]
     Active Substance: INSULIN HUMAN
     Dosage: 11 U, OTHER
     Dates: start: 1991
  3. HUMULIN R [Suspect]
     Active Substance: INSULIN HUMAN
     Dosage: 30 U, EACH MORNING
     Dates: start: 1991
  4. HUMULIN R [Suspect]
     Active Substance: INSULIN HUMAN
     Dosage: 16 U, EACH EVENING
     Dates: start: 1991
  5. HUMULIN R [Suspect]
     Active Substance: INSULIN HUMAN
     Dosage: 30 U, EACH MORNING
     Dates: start: 1991
  6. HUMULIN N [Suspect]
     Active Substance: INSULIN HUMAN
     Indication: DIABETES MELLITUS
     Dosage: 17 U, EACH MORNING
     Dates: start: 1991
  7. HUMULIN N [Suspect]
     Active Substance: INSULIN HUMAN
     Dosage: 19 U, EACH EVENING
     Dates: start: 1991
  8. HUMULIN R [Suspect]
     Active Substance: INSULIN HUMAN
     Indication: DIABETES MELLITUS
     Dosage: 30 U, EACH MORNING
     Dates: start: 1991
  9. HUMULIN R [Suspect]
     Active Substance: INSULIN HUMAN
     Dosage: 16 U, EACH EVENING
     Dates: start: 1991
  10. HUMULIN R [Suspect]
     Active Substance: INSULIN HUMAN
     Dosage: 16 U, EACH MORNING
  11. HUMULIN R [Suspect]
     Active Substance: INSULIN HUMAN
     Dosage: 11 U, EACH EVENING
  12. HUMULIN R [Suspect]
     Active Substance: INSULIN HUMAN
     Dosage: 16 U, EACH EVENING
     Dates: start: 1991
  13. HUMULIN R [Suspect]
     Active Substance: INSULIN HUMAN
     Dosage: 11 U, OTHER
     Dates: start: 1991
  14. HUMULIN R [Suspect]
     Active Substance: INSULIN HUMAN
     Dosage: 17 U, EACH MORNING
  15. HUMULIN R [Suspect]
     Active Substance: INSULIN HUMAN
     Dosage: 11 U, OTHER
     Dates: start: 1991
  16. HUMULIN R [Suspect]
     Active Substance: INSULIN HUMAN
     Dosage: 7 U, OTHER
  17. HUMULIN R [Suspect]
     Active Substance: INSULIN HUMAN
     Dosage: 11 U, EACH EVENING
  18. HUMULIN N [Suspect]
     Active Substance: INSULIN HUMAN
     Dosage: 19 U, EACH EVENING
     Dates: start: 1991

REACTIONS (6)
  - Blood glucose increased [Unknown]
  - Incorrect product storage [Unknown]
  - Blood glucose increased [Unknown]
  - Feeling abnormal [Unknown]
  - Exposure during pregnancy [Not Recovered/Not Resolved]
  - Incorrect product storage [Unknown]

NARRATIVE: CASE EVENT DATE: 201102
